FAERS Safety Report 17465502 (Version 1)
Quarter: 2020Q1

REPORT INFORMATION
  Report Type: Spontaneous
  Country: US (occurrence: US)
  Receive Date: 20200227
  Receipt Date: 20200227
  Transmission Date: 20200409
  Serious: No
  Sender: FDA-Public Use
  Company Number: US-TEVA-2020-US-1189175

PATIENT
  Sex: Female
  Weight: 59.02 kg

DRUGS (3)
  1. ZYDUS BOSENTAN [Suspect]
     Active Substance: BOSENTAN
     Indication: PULMONARY ARTERIAL HYPERTENSION
     Dosage: 250 MILLIGRAM DAILY;
     Route: 048
     Dates: start: 20190718
  2. TADALAFIL. [Suspect]
     Active Substance: TADALAFIL
     Route: 065
  3. OFEV [Concomitant]
     Active Substance: NINTEDANIB
     Route: 065

REACTIONS (3)
  - Hypotension [Unknown]
  - Dizziness [Unknown]
  - Intentional product use issue [Unknown]
